FAERS Safety Report 5677684-3 (Version None)
Quarter: 2008Q1

REPORT INFORMATION
  Report Type: 
  Country: None (occurrence: None)
  Receive Date: 20080324
  Receipt Date: 20071206
  Transmission Date: 20080703
  Serious: Yes (Hospitalization)
  Sender: FDA-Public Use
  Company Number: US-BOEHRINGER INGELHEIM GMBH, GERMANY-2007-BP-02058BP

PATIENT
  Sex: Female

DRUGS (42)
  1. MIRAPEX [Suspect]
     Indication: RESTLESS LEGS SYNDROME
     Route: 048
     Dates: start: 20010312, end: 20050721
  2. MAXZIDE [Concomitant]
     Indication: HYPERTENSION
     Dates: end: 20011206
  3. ATENOLOL [Concomitant]
     Indication: HYPERTENSION
     Dates: start: 20030201
  4. PRILOSEC [Concomitant]
     Indication: GASTROOESOPHAGEAL REFLUX DISEASE
     Dates: start: 20021201
  5. ASPIRIN [Concomitant]
     Indication: CARDIOVASCULAR EVENT PROPHYLAXIS
  6. ESTRADIOL [Concomitant]
     Indication: HORMONE REPLACEMENT THERAPY
     Dates: start: 20021001
  7. PROMETRIUM [Concomitant]
     Indication: HORMONE REPLACEMENT THERAPY
  8. TRAZODONE HCL [Concomitant]
     Indication: MYALGIA
     Dates: start: 20010801
  9. ZOCOR [Concomitant]
     Indication: HYPERLIPIDAEMIA
  10. CELEXA [Concomitant]
     Indication: DEPRESSION
     Dates: start: 20010221
  11. GLUCOSAMINE [Concomitant]
  12. LORAZEPAM [Concomitant]
     Indication: ANXIETY
     Dates: start: 20021001
  13. IBUPROFEN [Concomitant]
  14. DARVOCET-N 100 [Concomitant]
     Indication: PAIN
     Dates: start: 20011201
  15. FLEXERIL [Concomitant]
     Indication: BACK PAIN
     Dates: start: 20010901
  16. CALCIUM [Concomitant]
  17. ALBUTEROL [Concomitant]
  18. TRIAMTERENE [Concomitant]
  19. FIORINAL [Concomitant]
     Indication: MIGRAINE
     Dates: start: 20010101
  20. NICOTINE [Concomitant]
     Dates: start: 20050101
  21. PROCHLORPERAZINE [Concomitant]
     Dates: start: 20021101
  22. PAXIL [Concomitant]
     Indication: DEPRESSION
     Dates: start: 20020801
  23. CYCLOBENZAPRINE HCL [Concomitant]
     Dates: start: 20010101
  24. BENZONATATE [Concomitant]
  25. AMITRIPTYLINE HCL [Concomitant]
     Dates: start: 20010227
  26. PREDNISONE TAB [Concomitant]
  27. TOPAMAX [Concomitant]
     Dates: start: 20030101
  28. HYDROXYZINE [Concomitant]
  29. BACLOFEN [Concomitant]
     Dates: start: 20011001
  30. NAPROSYN [Concomitant]
     Dates: start: 20040914
  31. TERAZOL 7 [Concomitant]
  32. M.V.I. [Concomitant]
  33. VITAMIN D [Concomitant]
  34. MSM WITH GLUCOSAMINE [Concomitant]
  35. BENADRYL [Concomitant]
     Dates: start: 20030728
  36. ATARAX [Concomitant]
     Dates: start: 20030728
  37. FOLIC ACID [Concomitant]
  38. COLACE [Concomitant]
  39. SELENIUM [Concomitant]
  40. ZINC [Concomitant]
  41. NITROGLYCERIN [Concomitant]
  42. DESYREL [Concomitant]

REACTIONS (8)
  - DEPRESSION [None]
  - ECONOMIC PROBLEM [None]
  - EMOTIONAL DISTRESS [None]
  - INJURY [None]
  - OBSESSIVE-COMPULSIVE DISORDER [None]
  - PATHOLOGICAL GAMBLING [None]
  - SUICIDAL IDEATION [None]
  - SUICIDE ATTEMPT [None]
